FAERS Safety Report 5340372-7 (Version None)
Quarter: 2007Q2

REPORT INFORMATION
  Report Type: 
  Country: None (occurrence: None)
  Receive Date: 20070405
  Receipt Date: 20070117
  Transmission Date: 20071010
  Serious: Yes (Death)
  Sender: FDA-Public Use
  Company Number: US200701001845

PATIENT
  Age: 25 Year
  Sex: Female
  Weight: 47.6 kg

DRUGS (2)
  1. CYMBALTA [Suspect]
     Indication: ANXIETY
     Dosage: 60 MG, DAILY (1/D), ORAL
     Route: 048
     Dates: start: 20060424
  2. WELLBUTRIN [Concomitant]

REACTIONS (1)
  - COMPLETED SUICIDE [None]
